FAERS Safety Report 8827791 (Version 2)
Quarter: 2013Q1

REPORT INFORMATION
  Report Type: Spontaneous
  Country: US (occurrence: US)
  Receive Date: 20121008
  Receipt Date: 20130220
  Transmission Date: 20140127
  Serious: No
  Sender: FDA-Public Use
  Company Number: US-PFIZER INC-2012246897

PATIENT
  Age: 10 Year
  Sex: Male
  Weight: 39 kg

DRUGS (3)
  1. ZOLOFT [Suspect]
     Dosage: 3.0ML/DAY
     Route: 048
  2. SERTRALINE HCL [Suspect]
     Indication: ANXIETY
     Dosage: 3 ML, 1X/DAY
     Route: 048
     Dates: start: 2010
  3. MIRALAX [Concomitant]
     Indication: CONSTIPATION
     Dosage: UNK

REACTIONS (2)
  - Food allergy [Unknown]
  - Rash [Unknown]
